FAERS Safety Report 9233885 (Version 1)
Quarter: 2013Q1

REPORT INFORMATION
  Report Type: Spontaneous
  Country: US (occurrence: None)
  Receive Date: 20121031
  Receipt Date: 20121031
  Transmission Date: 20140127
  Serious: No
  Sender: FDA-Public Use
  Company Number: PHEH2012US016429

PATIENT
  Age: 50 Year
  Sex: Male

DRUGS (2)
  1. GILENYA [Suspect]
  2. AMPYRA (FAMPRIDINE), 10MG [Concomitant]

REACTIONS (3)
  - Balance disorder [None]
  - Diplopia [None]
  - Dizziness [None]
